FAERS Safety Report 4445340-5 (Version None)
Quarter: 2004Q3

REPORT INFORMATION
  Report Type: 
  Country: None (occurrence: None)
  Receive Date: 20040909
  Receipt Date: 20030929
  Transmission Date: 20050211
  Serious: Yes (Hospitalization, Disabling)
  Sender: FDA-Public Use
  Company Number: US-MERCK-0310USA00122

PATIENT
  Age: 40 Year
  Sex: Female
  Weight: 61 kg

DRUGS (14)
  1. [THERAPY UNSPECIFIED] [Concomitant]
     Indication: PAIN
     Route: 065
     Dates: start: 19951201, end: 20001101
  2. TYLENOL [Concomitant]
     Route: 065
     Dates: start: 20040201
  3. LORTAB [Concomitant]
     Route: 065
     Dates: start: 20040501
  4. AMOXIL [Concomitant]
     Route: 065
     Dates: start: 20040201
  5. FOLIC ACID [Concomitant]
     Route: 065
  6. REMICADE [Concomitant]
     Route: 065
  7. INJECTABLE GOLD (UNSPECIFIED) [Concomitant]
     Route: 065
  8. METHOTREXATE [Concomitant]
     Indication: ARTHRITIS
     Route: 065
     Dates: start: 19951201, end: 20040407
  9. METHOTREXATE [Concomitant]
     Route: 065
     Dates: start: 20040414
  10. NAPROSYN [Concomitant]
     Route: 065
     Dates: end: 20001003
  11. METAMUCIL-2 [Concomitant]
     Route: 065
  12. VIOXX [Suspect]
     Indication: PAIN
     Route: 048
     Dates: start: 20001013
  13. VIOXX [Suspect]
     Route: 048
     Dates: start: 20001101, end: 20040331
  14. MYLICON [Concomitant]
     Route: 065
     Dates: start: 20040501

REACTIONS (22)
  - ABDOMINAL PAIN UPPER [None]
  - ALOPECIA [None]
  - ANAEMIA [None]
  - ARTHRITIS [None]
  - ASTHENIA [None]
  - BLADDER DISORDER [None]
  - BREAST MASS [None]
  - BRONCHITIS [None]
  - CARDIAC DISORDER [None]
  - CARDIAC FLUTTER [None]
  - CONSTIPATION [None]
  - DIZZINESS [None]
  - DYSMENORRHOEA [None]
  - EMOTIONAL DISTRESS [None]
  - HEADACHE [None]
  - MENORRHAGIA [None]
  - NAUSEA [None]
  - POST PROCEDURAL COMPLICATION [None]
  - SWELLING [None]
  - UPPER RESPIRATORY TRACT INFECTION [None]
  - UTERINE LEIOMYOMA [None]
  - WEIGHT DECREASED [None]
